FAERS Safety Report 9366429 (Version 1)
Quarter: 2013Q2

REPORT INFORMATION
  Report Type: Spontaneous
  Country: DK (occurrence: DK)
  Receive Date: 20130625
  Receipt Date: 20130625
  Transmission Date: 20140414
  Serious: Yes (Other)
  Sender: FDA-Public Use
  Company Number: DK-JNJFOC-20130608572

PATIENT
  Age: 34 Year
  Sex: Female

DRUGS (1)
  1. CONCERTA [Suspect]
     Indication: ATTENTION DEFICIT/HYPERACTIVITY DISORDER
     Route: 048
     Dates: start: 20110907

REACTIONS (4)
  - Abortion spontaneous [Not Recovered/Not Resolved]
  - Uterine dilation and curettage [Recovered/Resolved]
  - Foetal death [Not Recovered/Not Resolved]
  - Exposure during pregnancy [Recovered/Resolved]
